FAERS Safety Report 4678630-1 (Version None)
Quarter: 2005Q2

REPORT INFORMATION
  Report Type: 
  Country: None (occurrence: None)
  Receive Date: 20050527
  Receipt Date: 20050516
  Transmission Date: 20051028
  Serious: Yes (Disabling)
  Sender: FDA-Public Use
  Company Number: 2005076932

PATIENT
  Age: 85 Year
  Sex: Female
  Weight: 65 kg

DRUGS (5)
  1. FELDENE [Suspect]
     Indication: ARTHRALGIA
     Dosage: 2 MG (20 MG, 1 IN 1 D), ORAL
     Route: 048
     Dates: start: 20050228, end: 20050305
  2. FELDENE [Suspect]
     Indication: BACK INJURY
     Dosage: 2 MG (20 MG, 1 IN 1 D), ORAL
     Route: 048
     Dates: start: 20050228, end: 20050305
  3. FELDENE [Suspect]
     Indication: BACK PAIN
     Dosage: 2 MG (20 MG, 1 IN 1 D), ORAL
     Route: 048
     Dates: start: 20050228, end: 20050305
  4. PREVISCAN (FLUINDIONE) [Suspect]
     Indication: ATRIAL FIBRILLATION
     Dosage: 10 MG (20 MG, 1IN 1 D), ORAL
     Route: 048
  5. PREVISCAN (FLUINDIONE) [Suspect]
     Indication: ATRIAL FLUTTER
     Dosage: 10 MG (20 MG, 1IN 1 D), ORAL
     Route: 048

REACTIONS (5)
  - DRUG INTERACTION [None]
  - HAEMATOMA [None]
  - INTERNATIONAL NORMALISED RATIO INCREASED [None]
  - PARESIS [None]
  - PROTHROMBIN TIME PROLONGED [None]
